FAERS Safety Report 25431070 (Version 2)
Quarter: 2025Q2

REPORT INFORMATION
  Report Type: Report from Study
  Country: AT (occurrence: AT)
  Receive Date: 20250612
  Receipt Date: 20250626
  Transmission Date: 20250717
  Serious: Yes (Death, Hospitalization, Other)
  Sender: ABBVIE
  Company Number: AT-ABBVIE-6322631

PATIENT
  Age: 70 Year
  Sex: Male

DRUGS (1)
  1. FOSCARBIDOPA\FOSLEVODOPA [Suspect]
     Active Substance: FOSCARBIDOPA\FOSLEVODOPA
     Indication: Parkinson^s disease
     Route: 058
     Dates: start: 20250604

REACTIONS (2)
  - Myocardial infarction [Fatal]
  - Loss of consciousness [Not Recovered/Not Resolved]

NARRATIVE: CASE EVENT DATE: 20250610
